FAERS Safety Report 5723669-8 (Version None)
Quarter: 2008Q2

REPORT INFORMATION
  Report Type: 
  Country: None (occurrence: None)
  Receive Date: 20080430
  Receipt Date: 20080418
  Transmission Date: 20081010
  Serious: Yes (Hospitalization, Other)
  Sender: FDA-Public Use
  Company Number: FR-BRISTOL-MYERS SQUIBB COMPANY-14166060

PATIENT
  Age: 60 Year
  Sex: Female

DRUGS (7)
  1. ENDOXAN [Suspect]
     Indication: B-CELL LYMPHOMA
     Dosage: PREVIOUS INFUSION DATES - 20-FEB-2008, 27-FEB-2008, 20-MAR-2008
     Route: 042
     Dates: start: 20080327, end: 20080327
  2. VINCRISTINE SULFATE [Suspect]
     Indication: B-CELL LYMPHOMA
     Dosage: PREVIOUS INFUSION DATES = 20-FEB-2008, 27-FEB-2008, 20-MAR-2008
     Route: 042
     Dates: start: 20080327, end: 20080327
  3. RITUXIMAB [Suspect]
     Indication: B-CELL LYMPHOMA
     Dosage: PREVIOUS INFUSION DATES = 20-FEB-2008, 27-FEB-2008
     Route: 042
     Dates: start: 20080327, end: 20080327
  4. CORTICOSTEROID [Concomitant]
  5. DOXORUBICIN HCL [Concomitant]
  6. ARACYTINE [Concomitant]
  7. DOMPERIDONE [Concomitant]

REACTIONS (1)
  - INTERSTITIAL LUNG DISEASE [None]
